FAERS Safety Report 12967808 (Version 2)
Quarter: 2017Q1

REPORT INFORMATION
  Report Type: Spontaneous
  Country: US (occurrence: US)
  Receive Date: 20161123
  Receipt Date: 20170328
  Transmission Date: 20170428
  Serious: Yes (Other)
  Sender: FDA-Public Use
  Company Number: US-TEVA-714811ACC

PATIENT
  Sex: Female

DRUGS (2)
  1. PRENATAL VITAMIN [Concomitant]
     Active Substance: VITAMINS
     Dates: start: 20161101
  2. PARAGARD T 380A [Suspect]
     Active Substance: COPPER
     Dates: start: 201309

REACTIONS (2)
  - Exposure during pregnancy [Unknown]
  - Pregnancy on contraceptive [Unknown]
